FAERS Safety Report 8991065 (Version 1)
Quarter: 2012Q4

REPORT INFORMATION
  Report Type: Spontaneous
  Country: US (occurrence: None)
  Receive Date: 20121220
  Receipt Date: 20121220
  Transmission Date: 20130627
  Serious: Yes (Other)
  Sender: FDA-Public Use
  Company Number: 2012-312

PATIENT
  Age: 61 Year
  Sex: Male
  Weight: 55 kg

DRUGS (4)
  1. PRIALT [Suspect]
     Indication: PAIN
  2. ANTIDEPRESSANTS [Concomitant]
  3. VALIUM [Concomitant]
  4. TEMAZEPAM (TEMAZEPAM) [Concomitant]

REACTIONS (11)
  - Blindness [None]
  - Porphyria [None]
  - Visual acuity reduced [None]
  - Screaming [None]
  - Vision blurred [None]
  - Dizziness [None]
  - Headache [None]
  - Mental status changes [None]
  - Hallucination [None]
  - Diplopia [None]
  - Pain [None]
